FAERS Safety Report 9378671 (Version 1)
Quarter: 2013Q2

REPORT INFORMATION
  Report Type: Spontaneous
  Country: IL (occurrence: None)
  Receive Date: 20130626
  Receipt Date: 20130626
  Transmission Date: 20140414
  Serious: Yes (Hospitalization, Congenital Anomaly, Other)
  Sender: FDA-Public Use
  Company Number: 2013P1009666

PATIENT
  Sex: Male
  Weight: 2.69 kg

DRUGS (1)
  1. OXCARBAZEPINE [Suspect]
     Indication: EPILEPSY
     Route: 064

REACTIONS (22)
  - Caesarean section [None]
  - Premature baby [None]
  - Apgar score low [None]
  - Hypotonia neonatal [None]
  - Neonatal respiratory distress syndrome [None]
  - Regurgitation [None]
  - Maternal drugs affecting foetus [None]
  - Irritability [None]
  - Drug withdrawal syndrome neonatal [None]
  - Crying [None]
  - Tremor neonatal [None]
  - Sneezing [None]
  - Feeding disorder neonatal [None]
  - Congenital aortic stenosis [None]
  - Bicuspid aortic valve [None]
  - Atrial septal defect [None]
  - Patent ductus arteriosus [None]
  - Hydronephrosis [None]
  - Renal dysplasia [None]
  - Hyponatraemia [None]
  - Thrombocytopenia [None]
  - Ureteric stenosis [None]
